FAERS Safety Report 9592108 (Version 2)
Quarter: 2013Q4

REPORT INFORMATION
  Report Type: Spontaneous
  Country: US (occurrence: US)
  Receive Date: 20131004
  Receipt Date: 20131204
  Transmission Date: 20140711
  Serious: Yes (Hospitalization)
  Sender: FDA-Public Use
  Company Number: US-BIOGENIDEC-2013BI094249

PATIENT
  Age: 31 Year
  Sex: Female

DRUGS (6)
  1. TYSABRI [Suspect]
     Indication: MULTIPLE SCLEROSIS
     Route: 042
     Dates: start: 20100715, end: 20100811
  2. RITALIN [Concomitant]
  3. FLEXERIL [Concomitant]
  4. CLONIDINE HCL [Concomitant]
  5. METHADONE HCL [Concomitant]
  6. CITALOPRAM HYDROBROMIDE [Concomitant]

REACTIONS (3)
  - Hypersensitivity [Recovered/Resolved]
  - Drug specific antibody present [Unknown]
  - Neurogenic bladder [Unknown]
